FAERS Safety Report 9914630 (Version 3)
Quarter: 2014Q3

REPORT INFORMATION
  Report Type: Spontaneous
  Country: US (occurrence: US)
  Receive Date: 20140220
  Receipt Date: 20140915
  Transmission Date: 20150326
  Serious: Yes (Hospitalization, Disabling, Other)
  Sender: FDA-Public Use
  Company Number: US-BAYER-2014-025233

PATIENT
  Age: 31 Year
  Sex: Female
  Weight: 81.63 kg

DRUGS (1)
  1. MIRENA [Suspect]
     Active Substance: LEVONORGESTREL
     Indication: CONTRACEPTION
     Dosage: 20 MCG/24HR, CONT
     Route: 015
     Dates: start: 200611, end: 20111221

REACTIONS (15)
  - Injury [None]
  - Depression [None]
  - Emotional distress [None]
  - Ectopic pregnancy [None]
  - Deformity [None]
  - Anhedonia [None]
  - Urinary tract infection [None]
  - Procedural pain [None]
  - Pain [None]
  - General physical health deterioration [None]
  - Bladder perforation [None]
  - Anxiety [None]
  - Drug ineffective [None]
  - Device issue [None]
  - Device dislocation [None]

NARRATIVE: CASE EVENT DATE: 200612
